FAERS Safety Report 8255188-1 (Version None)
Quarter: 2012Q1

REPORT INFORMATION
  Report Type: 
  Country: None (occurrence: None)
  Receive Date: 20120322
  Receipt Date: 20120213
  Transmission Date: 20120608
  Serious: Yes (Hospitalization)
  Sender: FDA-Public Use
  Company Number: UTC-015521

PATIENT
  Age: 60 Year
  Sex: Male
  Weight: 118 kg

DRUGS (3)
  1. ADCIRCA [Concomitant]
  2. TYVASO [Suspect]
     Indication: PULMONARY ARTERIAL HYPERTENSION
     Dosage: 240 MCG (60 MCG, 4 IN 1 D) , INHALATION
     Route: 055
     Dates: start: 20110608
  3. DIURETICS (DIURETICS) [Concomitant]

REACTIONS (1)
  - RENAL FAILURE [None]
